FAERS Safety Report 7398164-3 (Version None)
Quarter: 2011Q2

REPORT INFORMATION
  Report Type: 
  Country: None (occurrence: None)
  Receive Date: 20110406
  Receipt Date: 20110325
  Transmission Date: 20111010
  Serious: Yes (Hospitalization, Other)
  Sender: FDA-Public Use
  Company Number: PHHO2010FR14494

PATIENT
  Weight: 51 kg

DRUGS (13)
  1. PHOSPHONEUROS [Concomitant]
  2. EPREX [Concomitant]
  3. ELISOR [Concomitant]
  4. LANTUS [Concomitant]
  5. NOVORAPID [Concomitant]
  6. XYZAL [Concomitant]
  7. CYCLOSPORINE [Suspect]
     Indication: RENAL TRANSPLANT
     Dosage: 4 MG
     Route: 048
     Dates: start: 20100516, end: 20100923
  8. AMLODIPINE BESYLATE [Concomitant]
  9. DIFFU K [Concomitant]
  10. CELLCEPT [Suspect]
     Indication: RENAL TRANSPLANT
     Dosage: 1 G
     Route: 048
     Dates: start: 20100511
  11. ROVALCYTE [Concomitant]
  12. INIPOMP [Concomitant]
  13. UVEDOSE [Concomitant]

REACTIONS (8)
  - TRANSPLANT REJECTION [None]
  - BLOOD CREATININE INCREASED [None]
  - HYPOGLYCAEMIA [None]
  - MENIERE'S DISEASE [None]
  - BACTERIAL PYELONEPHRITIS [None]
  - POLLAKIURIA [None]
  - SPONDYLITIS [None]
  - DIABETES MELLITUS INADEQUATE CONTROL [None]
